FAERS Safety Report 5092503-4 (Version None)
Quarter: 2006Q3

REPORT INFORMATION
  Report Type: 
  Country: None (occurrence: None)
  Receive Date: 20060828
  Receipt Date: 20060817
  Transmission Date: 20061208
  Serious: Yes (Other)
  Sender: FDA-Public Use
  Company Number: 2006100390

PATIENT
  Age: 68 Year
  Sex: Male
  Weight: 95.709 kg

DRUGS (5)
  1. ZOLOFT [Suspect]
     Indication: BLOOD PRESSURE
     Dosage: 10 MG (10 MG, 1 IN 1 D);
  2. ASPIRIN [Concomitant]
  3. COUMADIN [Concomitant]
  4. NAMENDA [Concomitant]
  5. ANTI-PARKINSON AGENTS (ANTI-PARKINSON AGENTS) [Concomitant]

REACTIONS (2)
  - DEMENTIA [None]
  - FEELING ABNORMAL [None]
